FAERS Safety Report 17938676 (Version 2)
Quarter: 2020Q3

REPORT INFORMATION
  Report Type: Spontaneous
  Country: DE (occurrence: DE)
  Receive Date: 20200625
  Receipt Date: 20200721
  Transmission Date: 20201103
  Serious: Yes (Life-Threatening, Hospitalization)
  Sender: FDA-Public Use
  Company Number: DE-ROCHE-2629960

PATIENT
  Age: 75 Year
  Sex: Male

DRUGS (10)
  1. ESCOR [Concomitant]
     Indication: HYPERTENSION
     Route: 048
     Dates: start: 1995, end: 20110815
  2. ALLOPURINOL. [Suspect]
     Active Substance: ALLOPURINOL
     Indication: PRODUCT USED FOR UNKNOWN INDICATION
     Route: 048
     Dates: start: 2007, end: 20110815
  3. LUCENTIS [Suspect]
     Active Substance: RANIBIZUMAB
     Route: 065
  4. LUCENTIS [Suspect]
     Active Substance: RANIBIZUMAB
     Indication: MACULAR DEGENERATION
     Route: 031
     Dates: start: 20110707
  5. INSULIN BASAL [Concomitant]
     Active Substance: INSULIN NOS
     Indication: TYPE 2 DIABETES MELLITUS
     Route: 058
     Dates: start: 1995
  6. FURANTHRIL [Suspect]
     Active Substance: FUROSEMIDE
     Indication: PRODUCT USED FOR UNKNOWN INDICATION
     Route: 048
     Dates: start: 201002, end: 20110815
  7. AVODART [Suspect]
     Active Substance: DUTASTERIDE
     Indication: BENIGN PROSTATIC HYPERPLASIA
     Route: 048
     Dates: start: 200901
  8. DELIX [Concomitant]
     Indication: HYPERTENSION
     Route: 048
     Dates: start: 1995, end: 20110815
  9. CLOPIDOGREL [Concomitant]
     Active Substance: CLOPIDOGREL BISULFATE
     Indication: PRODUCT USED FOR UNKNOWN INDICATION
     Route: 048
     Dates: start: 2000
  10. HUMAN INSULIN [Concomitant]
     Active Substance: INSULIN HUMAN
     Indication: TYPE 2 DIABETES MELLITUS
     Route: 058
     Dates: start: 1995

REACTIONS (4)
  - Dyspnoea [Unknown]
  - Tubulointerstitial nephritis [Unknown]
  - Acute kidney injury [Recovering/Resolving]
  - Fibrin D dimer increased [Unknown]

NARRATIVE: CASE EVENT DATE: 20110808
